FAERS Safety Report 19361692 (Version 1)
Quarter: 2021Q2

REPORT INFORMATION
  Report Type: Report from Study
  Country: None (occurrence: US)
  Receive Date: 20210602
  Receipt Date: 20210602
  Transmission Date: 20210717
  Serious: No
  Sender: FDA-Public Use
  Company Number: US-MDD US OPERATIONS-USW202005-001108

PATIENT
  Age: 73 Year
  Sex: Male
  Weight: 72.57 kg

DRUGS (2)
  1. APOKYN [Suspect]
     Active Substance: APOMORPHINE HYDROCHLORIDE
     Route: 058
     Dates: start: 20200522, end: 20200523
  2. APOKYN [Suspect]
     Active Substance: APOMORPHINE HYDROCHLORIDE
     Indication: PARKINSON^S DISEASE
     Dosage: 30 MG/3ML
     Route: 058
     Dates: start: 20200521

REACTIONS (5)
  - Dizziness [Recovering/Resolving]
  - Somnolence [Recovering/Resolving]
  - Lethargy [Recovered/Resolved]
  - Rash [Recovering/Resolving]
  - Nausea [Recovering/Resolving]

NARRATIVE: CASE EVENT DATE: 20200521
